FAERS Safety Report 25671290 (Version 2)
Quarter: 2025Q3

REPORT INFORMATION
  Report Type: Spontaneous
  Country: CA (occurrence: CA)
  Receive Date: 20250812
  Receipt Date: 20250908
  Transmission Date: 20251021
  Serious: Yes (Other)
  Sender: AMERICAN REGENT
  Company Number: CA-AMERICAN REGENT INC-2025003120

PATIENT
  Age: 47 Year
  Sex: Female

DRUGS (2)
  1. VENOFER [Suspect]
     Active Substance: IRON SUCROSE
     Indication: Iron deficiency anaemia
  2. VENOFER [Suspect]
     Active Substance: IRON SUCROSE
     Dates: start: 20250322, end: 20250322

REACTIONS (6)
  - Skin tightness [Recovered/Resolved]
  - Erythema [Recovering/Resolving]
  - Rash [Recovering/Resolving]
  - Burning sensation [Recovered/Resolved]
  - Urticaria [Recovering/Resolving]
  - Incorrect product administration duration [Unknown]

NARRATIVE: CASE EVENT DATE: 20250322
